FAERS Safety Report 7875380-5 (Version None)
Quarter: 2011Q4

REPORT INFORMATION
  Report Type: 
  Country: None (occurrence: None)
  Receive Date: 20111031
  Receipt Date: 20111021
  Transmission Date: 20120403
  Serious: Yes (Death)
  Sender: FDA-Public Use
  Company Number: GB-GLAXOSMITHKLINE-B0757244A

PATIENT
  Age: 66 Year
  Sex: Male
  Weight: 88 kg

DRUGS (29)
  1. PIOGLITAZONE [Suspect]
     Route: 048
     Dates: start: 20100922
  2. CROMOLYN SODIUM [Concomitant]
  3. TINZAPARIN [Concomitant]
     Dosage: .75ML PER DAY
     Route: 058
  4. WARFARIN SODIUM [Concomitant]
  5. ASPIRIN [Concomitant]
     Dosage: 75MG PER DAY
  6. ROPIVACAINE HYDROCHLORIDE [Concomitant]
     Dosage: 1IUAX PER DAY
  7. FENOFIBRATE [Concomitant]
     Dosage: 160MG PER DAY
  8. ACETAMINOPHEN [Concomitant]
     Dosage: 4G PER DAY
  9. ONDANSETRON [Concomitant]
     Dosage: 8MG PER DAY
  10. FYBOGEL [Concomitant]
     Dosage: 7G PER DAY
  11. GLICLAZIDE [Concomitant]
     Dosage: 80MG PER DAY
  12. POLYETHYLENE GLYCOL [Concomitant]
     Dosage: 2IUAX PER DAY
     Route: 048
  13. MOMETASONE FUROATE [Concomitant]
     Route: 045
  14. CANDESARTAN CILEXETIL [Concomitant]
     Dosage: 8MG PER DAY
  15. DALTEPARIN SODIUM [Concomitant]
     Dosage: 18000IU PER DAY
     Route: 058
  16. FLUTICASONE PROPIONATE [Concomitant]
     Route: 045
  17. HYOSCINE BUTYLBROMIDE [Concomitant]
     Dosage: 90MG PER DAY
  18. HYDROCORTISONE [Concomitant]
  19. ROSIGLITAZONE [Suspect]
     Dates: start: 20040701
  20. METFORMIN HCL [Concomitant]
     Dosage: 500MG PER DAY
  21. OMEPRAZOLE [Concomitant]
     Dosage: 10MG PER DAY
  22. CLONAZEPAM [Concomitant]
  23. LACTULOSE [Concomitant]
     Dosage: 20ML PER DAY
  24. SENNA [Concomitant]
     Dosage: 15MG PER DAY
  25. TADALAFIL [Concomitant]
     Dosage: 10MG PER DAY
  26. TRAMADOL HCL [Concomitant]
     Dosage: 150MG PER DAY
  27. ASILONE [Concomitant]
  28. BISACODYL [Concomitant]
  29. PANTOPRAZOLE [Concomitant]
     Dosage: 40MG PER DAY
     Route: 042

REACTIONS (4)
  - NEOPLASM PROGRESSION [None]
  - METASTASES TO LIVER [None]
  - METASTASES TO LUNG [None]
  - METASTASES TO PERITONEUM [None]
